FAERS Safety Report 5432046-9 (Version None)
Quarter: 2007Q3

REPORT INFORMATION
  Report Type: 
  Country: None (occurrence: None)
  Receive Date: 20070830
  Receipt Date: 20070810
  Transmission Date: 20080115
  Serious: No
  Sender: FDA-Public Use
  Company Number: US-BOEHRINGER INGELHEIM PHARMACEUTICALS, INC.-2006-BP-02490BP

PATIENT
  Sex: Male
  Weight: 87.54 kg

DRUGS (17)
  1. MIRAPEX [Suspect]
     Indication: PARKINSON'S DISEASE
     Route: 048
     Dates: start: 19980825, end: 20051110
  2. AMANTADINE HCL [Concomitant]
     Indication: PARKINSON'S DISEASE
     Dates: start: 19990701
  3. SELENIUM SULFIDE [Concomitant]
  4. COENZYME Q10 [Concomitant]
  5. SINEMET [Concomitant]
     Indication: PARKINSON'S DISEASE
     Dates: start: 20000811
  6. CLARITIN [Concomitant]
     Indication: RHINITIS ALLERGIC
     Dates: start: 20000301
  7. VIAGRA [Concomitant]
     Dates: start: 20000401, end: 20051201
  8. MULTI-VITAMIN [Concomitant]
  9. LEXAPRO [Concomitant]
     Dates: start: 20040728, end: 20060501
  10. SEROQUEL [Concomitant]
  11. PROVIGIL [Concomitant]
     Indication: SOMNOLENCE
  12. CARBIDOPA AND LEVODOPA [Concomitant]
     Dates: start: 20000801
  13. DOXAZOSIN MESYLATE [Concomitant]
     Indication: HYPERTENSION
     Dates: start: 20011001, end: 20060701
  14. TRIAMTERENE AND HYDROCHLOROTHIAZIDE [Concomitant]
     Indication: OEDEMA PERIPHERAL
     Dates: start: 20030601
  15. CIALIS [Concomitant]
     Dates: start: 20060101
  16. STALEVO 100 [Concomitant]
     Dates: start: 20060401
  17. RITALIN-SR [Concomitant]
     Indication: SOMNOLENCE

REACTIONS (11)
  - DEPRESSION [None]
  - EMOTIONAL DISTRESS [None]
  - FATIGUE [None]
  - HYPERPHAGIA [None]
  - OBESITY [None]
  - OBSESSIVE-COMPULSIVE DISORDER [None]
  - PATHOLOGICAL GAMBLING [None]
  - SOMNOLENCE [None]
  - STRESS [None]
  - WEIGHT DECREASED [None]
  - WEIGHT INCREASED [None]
